FAERS Safety Report 8356040-3 (Version None)
Quarter: 2012Q2

REPORT INFORMATION
  Report Type: 
  Country: None (occurrence: None)
  Receive Date: 20120511
  Receipt Date: 20120511
  Transmission Date: 20120825
  Serious: Yes (Hospitalization)
  Sender: FDA-Public Use
  Company Number: None

PATIENT
  Age: 71 Year
  Sex: Female

DRUGS (2)
  1. DEXAMETHASONE [Suspect]
     Indication: NON-HODGKIN'S LYMPHOMA
  2. PREMETEXED [Suspect]
     Indication: TRANSITIONAL CELL CARCINOMA METASTATIC

REACTIONS (6)
  - ASTHENIA [None]
  - CONSTIPATION [None]
  - FALL [None]
  - BLOOD SODIUM DECREASED [None]
  - MENTAL STATUS CHANGES [None]
  - DIARRHOEA [None]
